FAERS Safety Report 4954918-1 (Version None)
Quarter: 2006Q1

REPORT INFORMATION
  Report Type: 
  Country: None (occurrence: None)
  Receive Date: 20060322
  Receipt Date: 20060304
  Transmission Date: 20060701
  Serious: Yes (Hospitalization)
  Sender: FDA-Public Use
  Company Number: JP200603000670

PATIENT
  Age: 90 Year
  Sex: Female

DRUGS (1)
  1. EVISTA [Suspect]
     Indication: OSTEOPOROSIS
     Dosage: ORAL
     Route: 048

REACTIONS (6)
  - BRAIN OEDEMA [None]
  - HEADACHE [None]
  - MENINGIOMA [None]
  - NEOPLASM PROGRESSION [None]
  - SPINAL DEFORMITY [None]
  - VISUAL FIELD DEFECT [None]
